FAERS Safety Report 8433579-3 (Version None)
Quarter: 2012Q2

REPORT INFORMATION
  Report Type: 
  Country: None (occurrence: None)
  Receive Date: 20120613
  Receipt Date: 20120612
  Transmission Date: 20120825
  Serious: Yes (Hospitalization)
  Sender: FDA-Public Use
  Company Number: JP-PFIZER INC-2012141676

PATIENT

DRUGS (1)
  1. HALCION [Suspect]
     Dosage: UNK
     Route: 048

REACTIONS (1)
  - PYREXIA [None]
